FAERS Safety Report 6683613-6 (Version None)
Quarter: 2010Q2

REPORT INFORMATION
  Report Type: 
  Country: None (occurrence: None)
  Receive Date: 20100412
  Receipt Date: 20091216
  Transmission Date: 20101027
  Serious: No
  Sender: FDA-Public Use
  Company Number: 2009-00816

PATIENT
  Age: 68 Year
  Sex: Female
  Weight: 63.5036 kg

DRUGS (1)
  1. COLD REMEDY NASAL GEL [Suspect]
     Dosage: Q 4 HOURS - 3 DOSES : 1 1/2 WKS AGO

REACTIONS (2)
  - AGEUSIA [None]
  - ANOSMIA [None]
